FAERS Safety Report 7340468-4 (Version None)
Quarter: 2011Q1

REPORT INFORMATION
  Report Type: 
  Country: None (occurrence: None)
  Receive Date: 20110309
  Receipt Date: 20110301
  Transmission Date: 20110831
  Serious: Yes (Other)
  Sender: FDA-Public Use
  Company Number: JP-JNJFOC-20110302993

PATIENT
  Age: 69 Year
  Sex: Female

DRUGS (6)
  1. RASILEZ [Concomitant]
     Route: 065
  2. AMARYL [Concomitant]
     Route: 065
  3. LIPIDIL [Concomitant]
     Route: 065
  4. EXFORGE [Concomitant]
     Route: 065
  5. LEVOFLOXACIN [Suspect]
     Indication: CYSTITIS
     Route: 065
  6. TENORMIN [Concomitant]
     Route: 065

REACTIONS (1)
  - SHOCK [None]
